FAERS Safety Report 8202500-5 (Version None)
Quarter: 2012Q1

REPORT INFORMATION
  Report Type: 
  Country: None (occurrence: None)
  Receive Date: 20120312
  Receipt Date: 20120302
  Transmission Date: 20120608
  Serious: Yes (Other)
  Sender: FDA-Public Use
  Company Number: US-JNJFOC-20120302445

PATIENT
  Age: 34 Year
  Sex: Male

DRUGS (1)
  1. REMICADE [Suspect]
     Indication: COLITIS ULCERATIVE
     Route: 042

REACTIONS (5)
  - DIZZINESS [None]
  - NAUSEA [None]
  - BUNDLE BRANCH BLOCK BILATERAL [None]
  - INFUSION RELATED REACTION [None]
  - HEADACHE [None]
